FAERS Safety Report 17887059 (Version 1)
Quarter: 2020Q2

REPORT INFORMATION
  Report Type: Spontaneous
  Country: IN (occurrence: IN)
  Receive Date: 20200612
  Receipt Date: 20200612
  Transmission Date: 20200714
  Serious: Yes (Death, Other)
  Sender: FDA-Public Use
  Company Number: IN-AMGEN-INDSP2020089019

PATIENT
  Age: 29 Day
  Sex: Male

DRUGS (2)
  1. CINACALCET HCL [Suspect]
     Active Substance: CINACALCET HYDROCHLORIDE
     Indication: HYPERPARATHYROIDISM PRIMARY
     Dosage: UNK
     Route: 065
  2. PAMIDRONATE [Concomitant]
     Active Substance: PAMIDRONATE DISODIUM

REACTIONS (5)
  - Death [Fatal]
  - Greenstick fracture [Unknown]
  - Off label use [Unknown]
  - Dyspnoea [Unknown]
  - Seizure [Unknown]
